FAERS Safety Report 8516072-9 (Version None)
Quarter: 2012Q3

REPORT INFORMATION
  Report Type: 
  Country: None (occurrence: None)
  Receive Date: 20120717
  Receipt Date: 20120713
  Transmission Date: 20120928
  Serious: Yes (Hospitalization)
  Sender: FDA-Public Use
  Company Number: US-PFIZER INC-2012104776

PATIENT
  Sex: Female

DRUGS (3)
  1. ATENOLOL [Concomitant]
     Dosage: 25 MG, 1X/DAY
  2. NICOTROL [Suspect]
     Dosage: 10 MG, 20 MIN PUFFING PER CARTRIDGE, MAX 16 CARTRIDGE/ DAY
     Route: 055
     Dates: start: 20120319
  3. LIPITOR [Suspect]
     Dosage: 10 MG, 1X/DAY
     Route: 048
     Dates: start: 20120401

REACTIONS (2)
  - BLOOD PRESSURE FLUCTUATION [None]
  - CLOSTRIDIAL INFECTION [None]
